FAERS Safety Report 6028618-3 (Version None)
Quarter: 2009Q1

REPORT INFORMATION
  Report Type: 
  Country: None (occurrence: None)
  Receive Date: 20090106
  Receipt Date: 20081226
  Transmission Date: 20090719
  Serious: Yes (Other)
  Sender: FDA-Public Use
  Company Number: LB-PFIZER INC-2008160246

PATIENT
  Sex: Female
  Weight: 59 kg

DRUGS (1)
  1. VARENICLINE TARTRATE [Suspect]
     Indication: SMOKING CESSATION THERAPY
     Dosage: 1 MG, 2X/DAY
     Route: 048
     Dates: start: 20081023, end: 20081220

REACTIONS (3)
  - INSOMNIA [None]
  - IRRITABILITY [None]
  - PANIC ATTACK [None]
